FAERS Safety Report 21245969 (Version 1)
Quarter: 2022Q3

REPORT INFORMATION
  Report Type: Report from Study
  Country: CA (occurrence: CA)
  Receive Date: 20220824
  Receipt Date: 20220824
  Transmission Date: 20221027
  Serious: Yes (Other)
  Sender: FDA-Public Use
  Company Number: CA-JNJFOC-20220843163

PATIENT
  Age: 35 Year
  Sex: Female
  Weight: 66 kg

DRUGS (2)
  1. STELARA [Suspect]
     Active Substance: USTEKINUMAB
     Indication: Colitis ulcerative
     Dosage: ON 18-AUG-2022 THE PATIENT COMPLETED PARTIAL MAYO SURVEY AND RECEIVED 15TH INJECTION OF 90 MG OF STE
     Route: 058
     Dates: start: 20210408
  2. STELARA [Suspect]
     Active Substance: USTEKINUMAB

REACTIONS (1)
  - Haematochezia [Not Recovered/Not Resolved]

NARRATIVE: CASE EVENT DATE: 20220817
